FAERS Safety Report 6637384-X (Version None)
Quarter: 2010Q1

REPORT INFORMATION
  Report Type: 
  Country: None (occurrence: None)
  Receive Date: 20100311
  Receipt Date: 20100224
  Transmission Date: 20100710
  Serious: Yes (Disabling)
  Sender: FDA-Public Use
  Company Number: 2010AP000224

PATIENT
  Age: 63 Year
  Sex: Male

DRUGS (4)
  1. RAMIPRIL [Suspect]
     Indication: HYPERTENSION
     Dosage: 10 MG;QD
     Dates: start: 20070101
  2. ASPIRIN [Concomitant]
  3. NIFEDIPINE [Concomitant]
  4. SIMVASTATIN [Concomitant]

REACTIONS (6)
  - ANGINA PECTORIS [None]
  - ASTHENIA [None]
  - DECREASED APPETITE [None]
  - GASTRITIS [None]
  - MYOCARDITIS [None]
  - VIRAL INFECTION [None]
